FAERS Safety Report 5135066-7 (Version None)
Quarter: 2006Q4

REPORT INFORMATION
  Report Type: 
  Country: None (occurrence: None)
  Receive Date: 20060831
  Receipt Date: 20060118
  Transmission Date: 20070319
  Serious: Yes (Life-Threatening)
  Sender: FDA-Public Use
  Company Number: 250134

PATIENT
  Sex: Female

DRUGS (1)
  1. NOVOLIN R [Suspect]
     Indication: DRUG USE FOR UNKNOWN INDICATION
     Dosage: 100 FOLD OVERDOSE, INTRAVENOUS
     Route: 042

REACTIONS (2)
  - HYPOGLYCAEMIC SEIZURE [None]
  - MEDICATION ERROR [None]
